FAERS Safety Report 8826673 (Version 1)
Quarter: 2012Q4

REPORT INFORMATION
  Report Type: 
  Country: US (occurrence: US)
  Receive Date: 20121005
  Receipt Date: 20121005
  Transmission Date: 20130627
  Serious: Yes (Death, Hospitalization)
  Sender: FDA-Public Use
  Company Number: US-GLAXOSMITHKLINE-A0794747A

PATIENT
  Age: 69 Year
  Sex: Male
  Weight: 81 kg

DRUGS (4)
  1. AVANDIA [Suspect]
     Indication: TYPE 2 DIABETES MELLITUS
     Dosage: 8MG In the morning
     Route: 048
     Dates: start: 20060111, end: 20070430
  2. INSULIN [Concomitant]
  3. TOPROL XL [Concomitant]
  4. NEXIUM [Concomitant]

REACTIONS (5)
  - Endocarditis [Fatal]
  - Rheumatic heart disease [Fatal]
  - Ischaemic stroke [Unknown]
  - Heart injury [Unknown]
  - Myocardial infarction [Unknown]
